FAERS Safety Report 4795086-9 (Version None)
Quarter: 2005Q4

REPORT INFORMATION
  Report Type: 
  Country: None (occurrence: None)
  Receive Date: 20051006
  Receipt Date: 20050926
  Transmission Date: 20060501
  Serious: Yes (Other)
  Sender: FDA-Public Use
  Company Number: 2005135036

PATIENT
  Age: 70 Year
  Sex: Female

DRUGS (1)
  1. SOMAVERT [Suspect]
     Indication: ACROMEGALY
     Dates: start: 20050501, end: 20050701

REACTIONS (2)
  - CEREBROVASCULAR ACCIDENT [None]
  - HEADACHE [None]
